FAERS Safety Report 7859948-8 (Version None)
Quarter: 2011Q4

REPORT INFORMATION
  Report Type: 
  Country: None (occurrence: None)
  Receive Date: 20111026
  Receipt Date: 20111026
  Transmission Date: 20120403
  Serious: Yes (Hospitalization)
  Sender: FDA-Public Use
  Company Number: None

PATIENT
  Age: 59 Year
  Sex: Male
  Weight: 93.2 kg

DRUGS (1)
  1. CLONAZEPAM [Suspect]
     Indication: ANXIETY
     Dosage: 1 MG EVERY DAY PO
     Route: 048
     Dates: start: 20110928, end: 20111014

REACTIONS (2)
  - MENTAL STATUS CHANGES [None]
  - ACCIDENTAL OVERDOSE [None]
